FAERS Safety Report 25528473 (Version 1)
Quarter: 2025Q3

REPORT INFORMATION
  Report Type: Spontaneous
  Country: EU (occurrence: EU)
  Receive Date: 20250708
  Receipt Date: 20250708
  Transmission Date: 20251020
  Serious: Yes (Death, Life-Threatening, Hospitalization)
  Sender: MERCK SHARP & DOHME LLC
  Company Number: None

PATIENT
  Age: 15 Month
  Sex: Female
  Weight: 9 kg

DRUGS (2)
  1. M-M-RVAXPRO [Suspect]
     Active Substance: MEASLES VIRUS STRAIN ENDERS^ ATTENUATED EDMONSTON LIVE ANTIGEN\MUMPS VIRUS STRAIN B LEVEL JERYL LYNN
     Indication: Immunisation
     Dates: start: 20210323
  2. STERILE DILUENT (WATER) [Suspect]
     Active Substance: WATER
     Dates: start: 20210323

REACTIONS (2)
  - Encephalitis [Fatal]
  - Epilepsy [Fatal]
